FAERS Safety Report 6762580-0 (Version None)
Quarter: 2010Q2

REPORT INFORMATION
  Report Type: 
  Country: None (occurrence: None)
  Receive Date: 20100609
  Receipt Date: 20100528
  Transmission Date: 20101027
  Serious: Yes (Life-Threatening, Other)
  Sender: FDA-Public Use
  Company Number: JP-PFIZER INC-2010067611

PATIENT
  Age: 62 Year
  Sex: Female

DRUGS (14)
  1. ZITHROMAC SR [Suspect]
     Indication: PNEUMONIA
     Dosage: 2 G, 1X/DAY
     Route: 048
     Dates: start: 20100518, end: 20100518
  2. ZITHROMAC SR [Suspect]
     Indication: PYREXIA
  3. ZITHROMAC SR [Suspect]
     Indication: PYELONEPHRITIS
  4. BUFFERIN [Concomitant]
     Route: 048
  5. TENORMIN [Concomitant]
     Route: 048
  6. OMEPRAL [Concomitant]
  7. TANATRIL ^TANABE^ [Concomitant]
     Route: 048
  8. FRANDOL [Concomitant]
  9. MYONAL [Concomitant]
     Route: 048
  10. DEPAS [Concomitant]
     Route: 048
  11. SIGMART [Concomitant]
  12. ACTOS [Concomitant]
     Route: 048
  13. SLOW-FE [Concomitant]
     Route: 048
  14. MAGNESIUM OXIDE HEAVY [Concomitant]
     Route: 048

REACTIONS (1)
  - LOSS OF CONSCIOUSNESS [None]
